APPROVED DRUG PRODUCT: KETOROLAC TROMETHAMINE
Active Ingredient: KETOROLAC TROMETHAMINE
Strength: 30MG/ML
Dosage Form/Route: INJECTABLE;INJECTION
Application: A076271 | Product #002 | TE Code: AP
Applicant: SANDOZ INC
Approved: Oct 6, 2004 | RLD: No | RS: No | Type: RX